FAERS Safety Report 6397253-X (Version None)
Quarter: 2009Q4

REPORT INFORMATION
  Report Type: 
  Country: None (occurrence: None)
  Receive Date: 20091012
  Receipt Date: 20091007
  Transmission Date: 20100525
  Serious: Yes (Life-Threatening, Disabling, Other)
  Sender: FDA-Public Use
  Company Number: US-MERCK-0904USA04560

PATIENT
  Age: 49 Year
  Sex: Male
  Weight: 69 kg

DRUGS (8)
  1. ISENTRESS [Suspect]
     Indication: HIV INFECTION
     Route: 048
     Dates: start: 20090424, end: 20090427
  2. TRUVADA [Concomitant]
     Route: 065
     Dates: start: 20090426, end: 20090101
  3. MEPRON [Concomitant]
     Route: 048
  4. ZITHROMAX [Concomitant]
     Route: 048
  5. ADVAIR DISKUS 100/50 [Concomitant]
     Route: 065
  6. SPIRIVA [Concomitant]
     Route: 065
  7. ALDACTONE [Concomitant]
     Route: 048
  8. XOPENEX [Concomitant]

REACTIONS (3)
  - BLOOD CREATINE PHOSPHOKINASE INCREASED [None]
  - MUSCLE SPASMS [None]
  - PAIN IN EXTREMITY [None]
